FAERS Safety Report 6246263-1 (Version None)
Quarter: 2009Q2

REPORT INFORMATION
  Report Type: 
  Country: None (occurrence: None)
  Receive Date: 20090624
  Receipt Date: 20090612
  Transmission Date: 20091009
  Serious: Yes (Death, Hospitalization, Other)
  Sender: FDA-Public Use
  Company Number: 82550

PATIENT
  Age: 48 Year
  Sex: Female

DRUGS (2)
  1. CARBOPLATIN INJ. [Suspect]
     Indication: BREAST CANCER METASTATIC
  2. PACLITAXEL [Suspect]

REACTIONS (6)
  - ANAPHYLACTIC REACTION [None]
  - BREAST CANCER METASTATIC [None]
  - DISEASE PROGRESSION [None]
  - NAIL DISCOLOURATION [None]
  - ONYCHOLYSIS [None]
  - PALMAR-PLANTAR ERYTHRODYSAESTHESIA SYNDROME [None]
